FAERS Safety Report 18948967 (Version 4)
Quarter: 2021Q3

REPORT INFORMATION
  Report Type: Report from Study
  Country: BR (occurrence: BR)
  Receive Date: 20210227
  Receipt Date: 20210901
  Transmission Date: 20211014
  Serious: Yes (Hospitalization)
  Sender: FDA-Public Use
  Company Number: NVSC2021BR041982

PATIENT
  Age: 67 Year
  Sex: Male
  Weight: 95 kg

DRUGS (4)
  1. COSENTYX [Suspect]
     Active Substance: SECUKINUMAB
     Indication: PSORIASIS
     Dosage: 150 MG, QMO (TWO 150MG AMPOULE)
     Route: 058
     Dates: start: 2019, end: 202106
  2. COSENTYX [Suspect]
     Active Substance: SECUKINUMAB
     Dosage: 300 MG, QMO
     Route: 058
     Dates: start: 20190621
  3. COSENTYX [Suspect]
     Active Substance: SECUKINUMAB
     Dosage: 300 MG, QMO
     Route: 058
     Dates: start: 20210128
  4. COSENTYX [Suspect]
     Active Substance: SECUKINUMAB
     Dosage: 300 MG, QMO
     Route: 058
     Dates: start: 20210528

REACTIONS (13)
  - Decreased appetite [Recovered/Resolved]
  - Anosmia [Recovered/Resolved]
  - Dizziness [Recovered/Resolved]
  - Hypersensitivity [Not Recovered/Not Resolved]
  - COVID-19 [Recovered/Resolved]
  - Ageusia [Recovered/Resolved]
  - Malaise [Recovered/Resolved]
  - Peripheral swelling [Not Recovered/Not Resolved]
  - Asthenia [Recovered/Resolved]
  - Dyspnoea [Recovered/Resolved]
  - Sluggishness [Recovered/Resolved]
  - Dysgeusia [Recovered/Resolved]
  - Skin irritation [Not Recovered/Not Resolved]

NARRATIVE: CASE EVENT DATE: 202011
